FAERS Safety Report 4920729-6 (Version None)
Quarter: 2006Q1

REPORT INFORMATION
  Report Type: 
  Country: None (occurrence: None)
  Receive Date: 20060223
  Receipt Date: 19971030
  Transmission Date: 20060701
  Serious: Yes (Hospitalization)
  Sender: FDA-Public Use
  Company Number: US-1997-UP-00090

PATIENT
  Sex: Male

DRUGS (6)
  1. PRAMIPEXOLE DIHYDROCHLORIDE [Suspect]
     Indication: PARKINSON'S DISEASE
     Route: 048
     Dates: start: 19961204, end: 20010822
  2. SELEGILINE HCL [Concomitant]
     Indication: PARKINSON'S DISEASE
     Route: 048
     Dates: start: 19910131, end: 19971029
  3. RANITIDINE [Concomitant]
     Indication: DYSPEPSIA
     Route: 048
     Dates: start: 19950101
  4. FLONASE [Concomitant]
     Indication: PROPHYLAXIS
     Route: 045
     Dates: start: 19961101
  5. VITAMIN E [Concomitant]
     Indication: MEDICAL DIET
  6. ASCORBIC ACID [Concomitant]
     Indication: MEDICAL DIET
     Route: 048
     Dates: start: 19900101

REACTIONS (6)
  - EUPHORIC MOOD [None]
  - GENITAL INJURY [None]
  - INSOMNIA [None]
  - LIBIDO INCREASED [None]
  - OEDEMA PERIPHERAL [None]
  - SOMNOLENCE [None]
